FAERS Safety Report 17525008 (Version 1)
Quarter: 2020Q1

REPORT INFORMATION
  Report Type: Spontaneous
  Country: US (occurrence: US)
  Receive Date: 20200302
  Receipt Date: 20200302
  Transmission Date: 20200409
  Serious: Yes (Disabling, Other)
  Sender: FDA-Public Use
  Company Number: None

PATIENT
  Age: 87 Year
  Sex: Female
  Weight: 62.14 kg

DRUGS (10)
  1. MAGNESIUM OXIDE. [Concomitant]
     Active Substance: MAGNESIUM OXIDE
  2. MELATONIN [Concomitant]
     Active Substance: MELATONIN
  3. BIO AIR RESPI-CHECK [Concomitant]
  4. METROPOLOL [Concomitant]
     Active Substance: METOPROLOL
  5. VITAMIN D3 [Concomitant]
     Active Substance: CHOLECALCIFEROL
  6. LIQUID CARAFATE [Concomitant]
  7. PANTOPRAZOLE [Concomitant]
     Active Substance: PANTOPRAZOLE
  8. COMPLETE 50+ [Concomitant]
  9. BIOTIN [Concomitant]
     Active Substance: BIOTIN
  10. LOSARTAN. [Suspect]
     Active Substance: LOSARTAN
     Indication: HYPERTENSION
     Dosage: ?          QUANTITY:1 DF DOSAGE FORM;?
     Route: 048
     Dates: start: 20191207, end: 20191227

REACTIONS (7)
  - Balance disorder [None]
  - Tremor [None]
  - Secretion discharge [None]
  - Epistaxis [None]
  - Asthenia [None]
  - Product quality issue [None]
  - Cough [None]

NARRATIVE: CASE EVENT DATE: 20191207
